FAERS Safety Report 4510099-X (Version None)
Quarter: 2004Q4

REPORT INFORMATION
  Report Type: 
  Country: None (occurrence: None)
  Receive Date: 20041119
  Receipt Date: 20041101
  Transmission Date: 20050328
  Serious: Yes (Congenital Anomaly, Other)
  Sender: FDA-Public Use
  Company Number: JP_041105058

PATIENT
  Age: 1 Day

DRUGS (1)
  1. HUMALOG [Suspect]

REACTIONS (4)
  - CONGENITAL ATRIAL SEPTAL DEFECT [None]
  - CONGENITAL VENTRICULAR SEPTAL DEFECT [None]
  - DRUG EXPOSURE DURING PREGNANCY [None]
  - PREGNANCY [None]
